FAERS Safety Report 5178869-5 (Version None)
Quarter: 2006Q4

REPORT INFORMATION
  Report Type: 
  Country: None (occurrence: None)
  Receive Date: 20061208
  Receipt Date: 20061130
  Transmission Date: 20070319
  Serious: Yes (Other)
  Sender: FDA-Public Use
  Company Number: 233297

PATIENT
  Age: 84 Year
  Sex: Male
  Weight: 70.3 kg

DRUGS (7)
  1. RANIBIZUMAB (RANIBIZUMAB) PWDR + SOLVENT, INJECTION SOLN [Suspect]
     Indication: MACULAR DEGENERATION
     Dosage: INTRAVITREAL
     Dates: start: 20060206
  2. ASPIRIN [Concomitant]
  3. SIMVASTATIN [Concomitant]
  4. OCUVITE (ASCORBIC ACID, BETA CAROTENE, COPPER NOS, LUTEIN, SELENIUM NO [Concomitant]
  5. GLYBURIDE [Concomitant]
  6. LANSOPRAZOLE [Concomitant]
  7. ACYCLOVIR [Concomitant]

REACTIONS (2)
  - BLOOD GLUCOSE INCREASED [None]
  - TRANSIENT ISCHAEMIC ATTACK [None]
